FAERS Safety Report 9742319 (Version 2)
Quarter: 2013Q4

REPORT INFORMATION
  Report Type: Spontaneous
  Country: GB (occurrence: GB)
  Receive Date: 20131210
  Receipt Date: 20131210
  Transmission Date: 20140711
  Serious: Yes (Other)
  Sender: FDA-Public Use
  Company Number: GB-PFIZER INC-2013297418

PATIENT
  Age: 67 Year
  Sex: Female

DRUGS (8)
  1. LYRICA [Suspect]
     Dosage: 300 MG, 2X/DAY
     Dates: start: 200811
  2. CLOPIDOGREL [Concomitant]
     Dosage: UNK
  3. ATORVASTATIN [Concomitant]
     Dosage: UNK
  4. REPAGLINIDE [Concomitant]
     Dosage: UNK
  5. SAXAGLIPTIN [Concomitant]
     Dosage: UNK
  6. METFORMIN [Concomitant]
     Dosage: UNK
  7. OMEPRAZOLE [Concomitant]
     Dosage: UNK
  8. TRAZODONE [Concomitant]
     Dosage: 200 MG, 2X/DAY

REACTIONS (4)
  - Cerebrovascular accident [Recovered/Resolved]
  - Hypotension [Unknown]
  - Blood pressure increased [Unknown]
  - Therapeutic response unexpected [Unknown]
